FAERS Safety Report 9383654 (Version 2)
Quarter: 2013Q3

REPORT INFORMATION
  Report Type: Spontaneous
  Country: US (occurrence: US)
  Receive Date: 20130704
  Receipt Date: 20130712
  Transmission Date: 20140515
  Serious: Yes (Other)
  Sender: FDA-Public Use
  Company Number: US-AMGEN-USASP2013041404

PATIENT
  Age: 80 Year
  Sex: Female

DRUGS (6)
  1. PROLIA [Suspect]
     Indication: OSTEOPOROSIS
     Dosage: ONCE ONLY, Q6MO
     Route: 058
     Dates: start: 20121210
  2. SYNTHROID [Concomitant]
     Dosage: 50 MUG, QD
     Route: 048
  3. PROTONIX [Concomitant]
     Dosage: 40 MG, QD
     Route: 048
  4. EVISTA [Concomitant]
     Dosage: 60 MG, QD
     Route: 048
  5. VESICARE [Concomitant]
     Dosage: 10 MG, QD
     Route: 048
  6. HYDROCHLOROTHIAZID [Concomitant]
     Dosage: 20 MG, QD
     Route: 048

REACTIONS (9)
  - Activities of daily living impaired [Unknown]
  - Pain [Not Recovered/Not Resolved]
  - Gait disturbance [Unknown]
  - Walking aid user [Unknown]
  - Back pain [Not Recovered/Not Resolved]
  - Bone pain [Not Recovered/Not Resolved]
  - Asthenia [Not Recovered/Not Resolved]
  - Myalgia [Unknown]
  - Arthralgia [Unknown]
